APPROVED DRUG PRODUCT: OXYCODONE AND ACETAMINOPHEN
Active Ingredient: ACETAMINOPHEN; OXYCODONE HYDROCHLORIDE
Strength: 325MG;7.5MG
Dosage Form/Route: TABLET;ORAL
Application: A090734 | Product #001
Applicant: PH HEALTH LTD
Approved: Jul 11, 2013 | RLD: No | RS: No | Type: DISCN